FAERS Safety Report 26172855 (Version 1)
Quarter: 2025Q4

REPORT INFORMATION
  Report Type: Spontaneous
  Country: EU (occurrence: EU)
  Receive Date: 20251218
  Receipt Date: 20251218
  Transmission Date: 20260118
  Serious: Yes (Other)
  Sender: GE HEALTHCARE
  Company Number: None

PATIENT
  Age: 47 Year
  Sex: Female

DRUGS (4)
  1. VISIPAQUE [Interacting]
     Active Substance: IODIXANOL
     Indication: Pelvic vein embolisation
     Dosage: 24 ML, TOTAL
     Route: 042
     Dates: start: 20230425, end: 20230425
  2. VISIPAQUE [Interacting]
     Active Substance: IODIXANOL
     Dosage: 80 ML, TOTAL
     Route: 042
     Dates: start: 20240402, end: 20240402
  3. LIPIODOL [Interacting]
     Active Substance: ETHIODIZED OIL
     Indication: Pelvic vein embolisation
     Dosage: 1 ML, QD
     Route: 042
     Dates: start: 20230425, end: 20230425
  4. LIPIODOL [Interacting]
     Active Substance: ETHIODIZED OIL
     Dosage: 1 ML, QD
     Route: 042
     Dates: start: 20240402, end: 20240402

REACTIONS (2)
  - Drug interaction [Not Recovered/Not Resolved]
  - Hyperthyroidism [Not Recovered/Not Resolved]

NARRATIVE: CASE EVENT DATE: 20230425
